FAERS Safety Report 14829407 (Version 1)
Quarter: 2018Q2

REPORT INFORMATION
  Report Type: Spontaneous
  Country: US (occurrence: US)
  Receive Date: 20180430
  Receipt Date: 20180430
  Transmission Date: 20180711
  Serious: Yes (Hospitalization)
  Sender: FDA-Public Use
  Company Number: US-JNJFOC-20180436471

PATIENT
  Age: 29 Year

DRUGS (1)
  1. XARELTO [Suspect]
     Active Substance: RIVAROXABAN
     Indication: PULMONARY EMBOLISM
     Route: 048
     Dates: start: 20160928, end: 20161004

REACTIONS (3)
  - Coccidioidomycosis [Unknown]
  - Sepsis [Unknown]
  - Haemothorax [Unknown]

NARRATIVE: CASE EVENT DATE: 20161005
